FAERS Safety Report 25118397 (Version 1)
Quarter: 2025Q1

REPORT INFORMATION
  Report Type: Spontaneous
  Country: US (occurrence: US)
  Receive Date: 20250325
  Receipt Date: 20250325
  Transmission Date: 20250408
  Serious: Yes (Other)
  Sender: AMGEN
  Company Number: US-AMGEN-USASP2025055099

PATIENT
  Age: 33 Year
  Sex: Male

DRUGS (28)
  1. TEPEZZA [Suspect]
     Active Substance: TEPROTUMUMAB-TRBW
     Indication: Toxic goitre
     Route: 040
     Dates: start: 20221220
  2. TEPEZZA [Suspect]
     Active Substance: TEPROTUMUMAB-TRBW
     Indication: Endocrine ophthalmopathy
     Route: 040
     Dates: start: 20230110
  3. TEPEZZA [Suspect]
     Active Substance: TEPROTUMUMAB-TRBW
     Indication: Graves^ disease
     Route: 040
     Dates: start: 20230131
  4. TEPEZZA [Suspect]
     Active Substance: TEPROTUMUMAB-TRBW
     Route: 040
     Dates: start: 20230221
  5. TEPEZZA [Suspect]
     Active Substance: TEPROTUMUMAB-TRBW
     Route: 040
     Dates: start: 20230314
  6. PREDNISONE [Suspect]
     Active Substance: PREDNISONE
     Indication: Otitis media acute
     Route: 065
  7. LEVOTHYROXINE [Concomitant]
     Active Substance: LEVOTHYROXINE
     Dosage: 100 MICROGRAM, QD
     Route: 048
  8. LEMTRADA [Concomitant]
     Active Substance: ALEMTUZUMAB
     Route: 065
  9. BACLOFEN [Concomitant]
     Active Substance: BACLOFEN
     Dosage: 10 MILLIGRAM, QD
     Route: 048
  10. FLUTICASONE PROPIONATE [Concomitant]
     Active Substance: FLUTICASONE PROPIONATE
     Dosage: UNK, BID (1 SPRAY) (50 MCG/ACTUAILON NASAL SPRAY)
     Route: 045
  11. LEVOTHYROXINE SODIUM [Concomitant]
     Active Substance: LEVOTHYROXINE SODIUM
     Route: 048
  12. POLYETHYLENE GLYCOL 3350 [Concomitant]
     Active Substance: POLYETHYLENE GLYCOL 3350
     Route: 048
  13. VITAMIN D [Concomitant]
     Active Substance: VITAMIN D NOS
     Dosage: 50 MICROGRAM, QD
     Route: 048
  14. VITAMIN D [Concomitant]
     Active Substance: VITAMIN D NOS
     Dosage: 1250 MICROGRAM, QWK
     Route: 048
  15. VITAMIN C [Concomitant]
     Active Substance: ASCORBIC ACID
     Dosage: 1000 MILLIGRAM, QD
     Route: 048
  16. VITAMINS [Concomitant]
     Active Substance: VITAMINS
     Route: 048
  17. CIMETIDINE [Concomitant]
     Active Substance: CIMETIDINE
     Dosage: 200 MILLIGRAM, BID
     Route: 048
  18. SYNTHROID [Concomitant]
     Active Substance: LEVOTHYROXINE SODIUM
     Dosage: 112 MICROGRAM, QD ( EMPTY STOMACH IN MORNING)
     Route: 048
  19. REFRESH CELLUVISC [Concomitant]
     Active Substance: CARBOXYMETHYLCELLULOSE SODIUM
     Route: 047
  20. Lacrilube [Concomitant]
     Dosage: UNK, QHS
     Route: 047
  21. Artificial tears [Concomitant]
     Indication: Dry eye
     Dosage: UNK, QID
     Route: 047
  22. REFRESH P.M. [Concomitant]
     Active Substance: MINERAL OIL\PETROLATUM
     Dosage: UNK, QHS
     Route: 065
  23. VITAMIN D3 [Concomitant]
     Active Substance: CHOLECALCIFEROL
     Route: 065
  24. VITAMIN D2 [Concomitant]
     Active Substance: ERGOCALCIFEROL
     Dosage: 1250 MICROGRAM, QWK
     Route: 048
  25. COPAXONE [Concomitant]
     Active Substance: GLATIRAMER ACETATE
     Route: 065
  26. SODIUM CHLORIDE [Concomitant]
     Active Substance: SODIUM CHLORIDE
     Route: 040
  27. INFLUENZA VIRUS VACCINE [Concomitant]
     Active Substance: INFLUENZA VIRUS VACCINE
     Route: 065
  28. METHIMAZOLE [Concomitant]
     Active Substance: METHIMAZOLE
     Route: 065

REACTIONS (22)
  - Multiple sclerosis [Unknown]
  - Upper respiratory tract infection [Unknown]
  - Bronchitis [Unknown]
  - Alanine aminotransferase increased [Unknown]
  - Blood calcium increased [Unknown]
  - Blood alkaline phosphatase increased [Unknown]
  - Anti-thyroid antibody increased [Unknown]
  - Thyroid stimulating immunoglobulin increased [Unknown]
  - Visual impairment [Unknown]
  - Diplopia [Unknown]
  - Ear pain [Unknown]
  - Oropharyngeal pain [Unknown]
  - Cough [Unknown]
  - Chest discomfort [Unknown]
  - Mucosal discolouration [Unknown]
  - Pharyngitis [Unknown]
  - Sluggishness [Unknown]
  - Erythema [Unknown]
  - Otitis media acute [Unknown]
  - Hypoacusis [Unknown]
  - Blood glucose increased [Unknown]
  - Fatigue [Unknown]

NARRATIVE: CASE EVENT DATE: 20190108
